FAERS Safety Report 6847027-8 (Version None)
Quarter: 2010Q3

REPORT INFORMATION
  Report Type: 
  Country: None (occurrence: None)
  Receive Date: 20100716
  Receipt Date: 20100707
  Transmission Date: 20110219
  Serious: Yes (Hospitalization)
  Sender: FDA-Public Use
  Company Number: US-BIOGENIDEC-2010BI008080

PATIENT
  Age: 44 Year
  Sex: Male

DRUGS (9)
  1. TYSABRI [Suspect]
     Indication: MULTIPLE SCLEROSIS
     Route: 042
     Dates: start: 20090603
  2. METOPROLOL [Concomitant]
  3. LISINOPRIL [Concomitant]
  4. ALLOPURINOL [Concomitant]
  5. HYDROCHLORATHIAZIDE [Concomitant]
  6. AMITRIPTYLINE HYDROCHLORIDE [Concomitant]
  7. WELLBUTRIN [Concomitant]
  8. BACLOFEN [Concomitant]
  9. CLONAZEPAM [Concomitant]

REACTIONS (5)
  - CYCLIC VOMITING SYNDROME [None]
  - MULTIPLE SCLEROSIS RELAPSE [None]
  - MUSCLE SPASMS [None]
  - MUSCLE SPASTICITY [None]
  - NUCLEAR MAGNETIC RESONANCE IMAGING ABNORMAL [None]
